FAERS Safety Report 9225846 (Version 1)
Quarter: 2013Q2

REPORT INFORMATION
  Report Type: Spontaneous
  Country: US (occurrence: US)
  Receive Date: 20130411
  Receipt Date: 20130411
  Transmission Date: 20140414
  Serious: No
  Sender: FDA-Public Use
  Company Number: US-ASTELLAS-2012US003969

PATIENT
  Age: 35 Year
  Sex: Male

DRUGS (1)
  1. PROTOPIC [Suspect]
     Indication: ALOPECIA SCARRING
     Dosage: 0.1 %, UNKNOWN/D
     Route: 061
     Dates: start: 20120327

REACTIONS (2)
  - Off label use [Unknown]
  - Hair colour changes [Recovered/Resolved]
